FAERS Safety Report 7565818-5 (Version None)
Quarter: 2011Q2

REPORT INFORMATION
  Report Type: 
  Country: None (occurrence: None)
  Receive Date: 20110617
  Receipt Date: 20100915
  Transmission Date: 20111010
  Serious: Yes (Other)
  Sender: FDA-Public Use
  Company Number: 2010-3160

PATIENT
  Age: 68 Year
  Sex: Female
  Weight: 55 kg

DRUGS (1)
  1. APOKYN [Suspect]
     Indication: PARKINSON'S DISEASE
     Dosage: 0.1 ML (0.1 ML,ONCE),SUBCUTANEOUS
     Route: 058
     Dates: start: 20100915

REACTIONS (5)
  - CHEST DISCOMFORT [None]
  - HYPERHIDROSIS [None]
  - BLOOD PRESSURE DECREASED [None]
  - NAUSEA [None]
  - CHEST PAIN [None]
